FAERS Safety Report 7141047-4 (Version None)
Quarter: 2010Q4

REPORT INFORMATION
  Report Type: 
  Country: None (occurrence: None)
  Receive Date: 20101122
  Receipt Date: 20101028
  Transmission Date: 20110411
  Serious: Yes (Other)
  Sender: FDA-Public Use
  Company Number: 021344

PATIENT
  Sex: Female
  Weight: 39 kg

DRUGS (4)
  1. CIMZIA [Suspect]
     Indication: RHEUMATOID ARTHRITIS
     Dosage: (400 MG 1X/2 WEEKS, 3 DOSES SUBCUTANEOUS)
     Route: 058
     Dates: start: 20100921, end: 20101019
  2. METHOTREXATE [Concomitant]
  3. FOLIC ACID [Concomitant]
  4. LEVOTHYROXINE SODIUM [Concomitant]

REACTIONS (8)
  - ARTHRALGIA [None]
  - CONDITION AGGRAVATED [None]
  - DEPRESSION [None]
  - HAEMOGLOBIN DECREASED [None]
  - MALAISE [None]
  - NAUSEA [None]
  - RED BLOOD CELL COUNT DECREASED [None]
  - SUICIDAL IDEATION [None]
